FAERS Safety Report 5480667-X (Version None)
Quarter: 2007Q4

REPORT INFORMATION
  Report Type: 
  Country: None (occurrence: None)
  Receive Date: 20071003
  Receipt Date: 20070926
  Transmission Date: 20080405
  Serious: Yes (Other)
  Sender: FDA-Public Use
  Company Number: CHPA2007US10105

PATIENT
  Age: 42 Year
  Sex: Female
  Weight: 68 kg

DRUGS (1)
  1. NICOTINE [Suspect]
     Indication: SMOKING CESSATION THERAPY
     Dosage: 14 MG, 1 PATCH DURING DAYTIME ONLY (7-8 HRS), TRANSDERMAL
     Route: 062
     Dates: start: 20070301

REACTIONS (5)
  - ASTHENOPIA [None]
  - BLOOD PRESSURE INCREASED [None]
  - FEELING HOT [None]
  - INAPPROPRIATE SCHEDULE OF DRUG ADMINISTRATION [None]
  - TREATMENT NONCOMPLIANCE [None]
